FAERS Safety Report 5622565-4 (Version None)
Quarter: 2008Q1

REPORT INFORMATION
  Report Type: 
  Country: None (occurrence: None)
  Receive Date: 20080114
  Receipt Date: 20071107
  Transmission Date: 20080703
  Serious: Yes (Other)
  Sender: FDA-Public Use
  Company Number: A03200706435

PATIENT
  Age: 80 Year
  Sex: Male

DRUGS (6)
  1. PLAVIX [Suspect]
     Dosage: 75 MG QD - ORAL
     Route: 048
  2. RANEXA [Suspect]
     Indication: ANGINA PECTORIS
     Dosage: 500 MG BID - ORAL
     Route: 048
     Dates: start: 20061124, end: 20060101
  3. ACETYLSALICYLIC ACID SRT [Concomitant]
  4. GLYCERYL TRINITRATE [Concomitant]
  5. ATORVASTATIN CALCIUM [Concomitant]
  6. TAMSULOSIN HCL [Concomitant]

REACTIONS (1)
  - NEUTROPENIA [None]
